FAERS Safety Report 5988432-1 (Version None)
Quarter: 2008Q4

REPORT INFORMATION
  Report Type: 
  Country: None (occurrence: None)
  Receive Date: 20081210
  Receipt Date: 20081203
  Transmission Date: 20090506
  Serious: Yes (Hospitalization)
  Sender: FDA-Public Use
  Company Number: JP-ASTRAZENECA-2008SE05623

PATIENT
  Age: 30643 Day
  Sex: Female

DRUGS (6)
  1. KENZEN [Suspect]
     Indication: HYPERTENSION
     Route: 048
     Dates: end: 20080505
  2. ELISOR [Concomitant]
     Indication: HYPERCHOLESTEROLAEMIA
     Route: 048
  3. PLAVIX [Concomitant]
     Indication: CEREBROVASCULAR ACCIDENT PROPHYLAXIS
     Route: 048
  4. COUMADIN [Concomitant]
     Indication: CEREBROVASCULAR ACCIDENT PROPHYLAXIS
     Route: 048
  5. CARDENSIEL [Concomitant]
     Indication: HYPERTENSION
     Route: 048
  6. ESBERIVEN [Concomitant]
     Indication: VENOUS INSUFFICIENCY
     Route: 048
     Dates: end: 20080505

REACTIONS (1)
  - MALAISE [None]
